FAERS Safety Report 4579187-6 (Version None)
Quarter: 2005Q1

REPORT INFORMATION
  Report Type: 
  Country: None (occurrence: None)
  Receive Date: 20050208
  Receipt Date: 20050208
  Transmission Date: 20050727
  Serious: Yes (Other)
  Sender: FDA-Public Use
  Company Number: None

PATIENT
  Sex: Male

DRUGS (5)
  1. THEOPHYLLINE-SR [Suspect]
     Indication: ASTHMA
     Dosage: 200 MG   3 TIMES DAILY   ORAL
     Route: 048
     Dates: start: 20050101, end: 20050125
  2. ALBUTEROL [Concomitant]
  3. TRIAMCINOLONE [Concomitant]
  4. IPATROPIUM [Concomitant]
  5. MONTELUKAST [Concomitant]

REACTIONS (1)
  - RASH [None]
